FAERS Safety Report 6401660-6 (Version None)
Quarter: 2009Q4

REPORT INFORMATION
  Report Type: 
  Country: None (occurrence: None)
  Receive Date: 20091009
  Receipt Date: 20091009
  Transmission Date: 20100525
  Serious: Yes (Hospitalization)
  Sender: FDA-Public Use
  Company Number: None

PATIENT
  Sex: Male
  Weight: 91.1 kg

DRUGS (8)
  1. CYCLOPHOSPHAMIDE [Suspect]
     Dosage: 2070 MG
  2. CYTARABINE [Suspect]
     Dosage: 1240 MG
  3. DEXAMETHASONE [Suspect]
     Dosage: 280 MG
  4. DOXORUBICIN HCL [Suspect]
     Dosage: 156 MG
  5. METHOTREXATE [Suspect]
     Dosage: 60 MG
  6. PEG-L ASPARAGINASE (K-H) [Suspect]
     Dosage: 10340 IU
  7. THIOGUANINE [Suspect]
     Dosage: 3120 MG
  8. VINCRISTINE SULFATE [Suspect]
     Dosage: 10 MG

REACTIONS (18)
  - ACUTE RESPIRATORY DISTRESS SYNDROME [None]
  - ANURIA [None]
  - ASPIRATION TRACHEAL ABNORMAL [None]
  - CARDIO-RESPIRATORY ARREST [None]
  - DECREASED APPETITE [None]
  - HEPATITIS [None]
  - HYPOPERFUSION [None]
  - HYPOTENSION [None]
  - ILEUS [None]
  - NAUSEA [None]
  - NEUTROPENIA [None]
  - PANCREATITIS [None]
  - PNEUMOCYSTIS JIROVECI INFECTION [None]
  - PYREXIA [None]
  - RENAL FAILURE [None]
  - RHINOVIRUS INFECTION [None]
  - SEPTIC SHOCK [None]
  - VENTRICULAR TACHYCARDIA [None]
